FAERS Safety Report 6136837-0 (Version None)
Quarter: 2009Q1

REPORT INFORMATION
  Report Type: 
  Country: None (occurrence: None)
  Receive Date: 20090305
  Receipt Date: 20090305
  Transmission Date: 20090719
  Serious: Yes (Life-Threatening, Hospitalization, Disabling)
  Sender: FDA-Public Use
  Company Number: None

PATIENT
  Age: 70 Year
  Sex: Female

DRUGS (2)
  1. DURAPREP [Suspect]
     Indication: INFECTION PROPHYLAXIS
     Dosage: 26ML/0.9 FL OZ SINGLE USE TOP
     Route: 061
     Dates: start: 20090130, end: 20090130
  2. DURAPREP [Suspect]
     Indication: PREOPERATIVE CARE
     Dosage: 26ML/0.9 FL OZ SINGLE USE TOP
     Route: 061
     Dates: start: 20090130, end: 20090130

REACTIONS (2)
  - PROCEDURAL COMPLICATION [None]
  - THERMAL BURN [None]
